FAERS Safety Report 7962733-X (Version None)
Quarter: 2011Q4

REPORT INFORMATION
  Report Type: 
  Country: None (occurrence: None)
  Receive Date: 20111207
  Receipt Date: 20111202
  Transmission Date: 20120403
  Serious: Yes (Other)
  Sender: FDA-Public Use
  Company Number: PHHY2011NL105479

PATIENT
  Sex: Female

DRUGS (2)
  1. ZOLEDRONOC ACID [Suspect]
     Indication: OSTEOPOROSIS
     Dosage: 5 MG PER 100ML ONCE PER YEAR
     Route: 042
     Dates: start: 20091202
  2. ZOLEDRONOC ACID [Suspect]
     Dosage: 5 MG PER 100ML ONCE PER YEAR
     Route: 042
     Dates: start: 20101202

REACTIONS (3)
  - RENAL DISORDER [None]
  - BLOOD URINE PRESENT [None]
  - URINARY TRACT DISORDER [None]
